FAERS Safety Report 10015997 (Version 1)
Quarter: 2014Q1

REPORT INFORMATION
  Report Type: Spontaneous
  Country: US (occurrence: US)
  Receive Date: 20140317
  Receipt Date: 20140317
  Transmission Date: 20141002
  Serious: Yes (Other)
  Sender: FDA-Public Use
  Company Number: US-PFIZER INC-2014076723

PATIENT
  Age: 76 Year
  Sex: Female
  Weight: 113.38 kg

DRUGS (3)
  1. LYRICA [Suspect]
     Indication: FIBROMYALGIA
     Dosage: 75 MG, 1X/DAY
     Route: 048
     Dates: start: 201401, end: 2014
  2. LYRICA [Suspect]
     Indication: SPINAL CORD DISORDER
     Dosage: 75 MG, 2X/DAY
     Route: 048
     Dates: start: 2014, end: 2014
  3. LYRICA [Suspect]
     Dosage: 75 MG, UNK
     Route: 048
     Dates: end: 2014

REACTIONS (8)
  - Swelling face [Recovered/Resolved]
  - Erythema [Recovered/Resolved]
  - Pain of skin [Recovered/Resolved]
  - Facial pain [Recovered/Resolved]
  - Dysphonia [Not Recovered/Not Resolved]
  - Local swelling [Recovered/Resolved]
  - Dry mouth [Recovered/Resolved]
  - Tongue dry [Recovered/Resolved]
